FAERS Safety Report 6511383-0 (Version None)
Quarter: 2009Q4

REPORT INFORMATION
  Report Type: 
  Country: None (occurrence: None)
  Receive Date: 20091222
  Receipt Date: 20090416
  Transmission Date: 20100525
  Serious: No
  Sender: FDA-Public Use
  Company Number: US-ASTRAZENECA-2009UW06210

PATIENT
  Age: 78 Year
  Sex: Male
  Weight: 71.7 kg

DRUGS (7)
  1. CRESTOR [Suspect]
     Indication: BLOOD CHOLESTEROL INCREASED
     Route: 048
     Dates: start: 20090216
  2. METOPROLOL TARTRATE [Concomitant]
  3. OMEPRAZOLE [Concomitant]
     Route: 048
  4. VASOTEC [Concomitant]
  5. ZINC [Concomitant]
  6. ASPIRIN [Concomitant]
  7. XYLANTIN EYE DROPS [Concomitant]
     Indication: GLAUCOMA

REACTIONS (1)
  - OEDEMA PERIPHERAL [None]
